FAERS Safety Report 21015687 (Version 1)
Quarter: 2022Q2

REPORT INFORMATION
  Report Type: Report from Study
  Country: US (occurrence: US)
  Receive Date: 20220628
  Receipt Date: 20220628
  Transmission Date: 20220720
  Serious: No
  Sender: FDA-Public Use
  Company Number: US-Ipsen Biopharmaceuticals, Inc.-2022-18103

PATIENT
  Age: 57 Year
  Sex: Female

DRUGS (1)
  1. SOMATULINE DEPOT [Suspect]
     Active Substance: LANREOTIDE ACETATE
     Indication: Acromegaly
     Dosage: 120MG/0.5ML
     Route: 058
     Dates: start: 202102

REACTIONS (5)
  - Skin implant [Recovering/Resolving]
  - Blood growth hormone increased [Recovering/Resolving]
  - Injection site scar [Recovering/Resolving]
  - Chest pain [Recovering/Resolving]
  - Lack of injection site rotation [Unknown]

NARRATIVE: CASE EVENT DATE: 20211001
